FAERS Safety Report 5643755-0 (Version None)
Quarter: 2008Q1

REPORT INFORMATION
  Report Type: 
  Country: None (occurrence: None)
  Receive Date: 20080228
  Receipt Date: 20080220
  Transmission Date: 20080703
  Serious: Yes (Hospitalization)
  Sender: FDA-Public Use
  Company Number: JP-ABBOTT-08P-087-0437351-00

PATIENT
  Sex: Male
  Weight: 57.5 kg

DRUGS (8)
  1. KLARICID TABLETS [Suspect]
     Indication: CHRONIC SINUSITIS
     Route: 048
     Dates: start: 20070913, end: 20080115
  2. L-CARBOCISTEINE [Concomitant]
     Indication: DRUG USE FOR UNKNOWN INDICATION
     Route: 048
     Dates: start: 20060511
  3. AMBROXOL HYDROCHLORIDE [Concomitant]
     Indication: DRUG USE FOR UNKNOWN INDICATION
     Route: 048
     Dates: start: 20070719
  4. PRONASE [Concomitant]
     Indication: DRUG USE FOR UNKNOWN INDICATION
     Route: 048
     Dates: start: 20060713
  5. THEOPHYLLINE [Concomitant]
     Indication: DRUG USE FOR UNKNOWN INDICATION
     Route: 048
     Dates: start: 20061119, end: 20080115
  6. IMMUNE GLOBULIN (HUMAN) [Concomitant]
     Indication: HYPOGAMMAGLOBULINAEMIA
     Dates: start: 20060501, end: 20080124
  7. SULTAMICILLIN TOSILATE [Concomitant]
     Indication: DRUG USE FOR UNKNOWN INDICATION
     Route: 048
     Dates: start: 20070329, end: 20080201
  8. PIPERACILLIN AND TAZOBACTAM [Concomitant]
     Indication: CHRONIC SINUSITIS

REACTIONS (7)
  - BETA 2 MICROGLOBULIN INCREASED [None]
  - BETA-N-ACETYL-D-GLUCOSAMINIDASE INCREASED [None]
  - GENERALISED OEDEMA [None]
  - HYPOALBUMINAEMIA [None]
  - HYPOPROTEINAEMIA [None]
  - RENAL TUBULAR DISORDER [None]
  - SENSATION OF HEAVINESS [None]
